FAERS Safety Report 10191370 (Version 1)
Quarter: 2014Q2

REPORT INFORMATION
  Report Type: Spontaneous
  Country: KR (occurrence: KR)
  Receive Date: 20140523
  Receipt Date: 20140523
  Transmission Date: 20141212
  Serious: Yes (Other)
  Sender: FDA-Public Use
  Company Number: KR-009507513-1405KOR011011

PATIENT
  Sex: 0

DRUGS (1)
  1. ROCURONIUM BROMIDE [Suspect]
     Indication: ANAESTHESIA

REACTIONS (1)
  - Apnoea neonatal [Recovered/Resolved]
